FAERS Safety Report 12078693 (Version 1)
Quarter: 2016Q1

REPORT INFORMATION
  Report Type: Spontaneous
  Country: US (occurrence: US)
  Receive Date: 20160216
  Receipt Date: 20160216
  Transmission Date: 20160526
  Serious: Yes (Hospitalization, Other)
  Sender: FDA-Public Use
  Company Number: US-DRREDDYS-USA/USA/16/0070355

PATIENT
  Age: 61 Year
  Sex: Male
  Weight: 87.54 kg

DRUGS (5)
  1. MOTRIN [Suspect]
     Active Substance: IBUPROFEN
     Indication: TOOTH DISORDER
  2. MOTRIN [Suspect]
     Active Substance: IBUPROFEN
     Indication: SWELLING
  3. MOTRIN [Suspect]
     Active Substance: IBUPROFEN
     Indication: CONTUSION
     Route: 048
  4. QUETIAPINE FUMARATE TABLETS [Suspect]
     Active Substance: QUETIAPINE FUMARATE
     Indication: BIPOLAR DISORDER
     Route: 065
  5. MOTRIN [Suspect]
     Active Substance: IBUPROFEN
     Indication: PAIN

REACTIONS (9)
  - Dehydration [Recovered/Resolved]
  - Drug effect decreased [Unknown]
  - Product quality issue [Unknown]
  - Fall [Recovered/Resolved with Sequelae]
  - Renal impairment [Recovering/Resolving]
  - Feeling abnormal [Unknown]
  - Vomiting [Recovered/Resolved]
  - Nausea [Recovered/Resolved]
  - Weight decreased [Recovered/Resolved]

NARRATIVE: CASE EVENT DATE: 20151222
